FAERS Safety Report 9523265 (Version 2)
Quarter: 2013Q3

REPORT INFORMATION
  Report Type: Spontaneous
  Country: US (occurrence: US)
  Receive Date: 20130913
  Receipt Date: 20130913
  Transmission Date: 20140515
  Serious: Yes (Hospitalization, Other)
  Sender: FDA-Public Use
  Company Number: US-009507513-2011SP000363

PATIENT
  Sex: Female
  Weight: 113.4 kg

DRUGS (5)
  1. NUVARING [Suspect]
     Indication: CONTRACEPTION
     Route: 067
     Dates: start: 20081017, end: 200901
  2. NUVARING [Suspect]
     Indication: MENSTRUAL DISORDER
  3. ROLAIDS (OLD FORMULA) [Concomitant]
     Dosage: 1-2 AS NEEDED; 550/110 MG CHEWABLE
     Route: 048
  4. SOMINEX (DIPHENHYDRAMINE HYDROCHLORIDE) [Concomitant]
     Dosage: 1 DAILY AT BEDTIME AS NEEDED
     Route: 048
  5. ACETAMINOPHEN (+) DIPHENHYDRAMINE HYDROCHLORIDE [Concomitant]
     Dosage: 25/500 MG TABLET DAILY AT BEDTIME AS NEEDED
     Route: 048

REACTIONS (3)
  - Pulmonary embolism [Recovered/Resolved]
  - Pain [Unknown]
  - Headache [Unknown]
